FAERS Safety Report 12459719 (Version 4)
Quarter: 2016Q3

REPORT INFORMATION
  Report Type: Report from Study
  Country: US (occurrence: US)
  Receive Date: 20160613
  Receipt Date: 20160811
  Transmission Date: 20161109
  Serious: Yes (Hospitalization)
  Sender: FDA-Public Use
  Company Number: US-BAYER-2016-114018

PATIENT
  Age: 36 Year
  Sex: Female

DRUGS (1)
  1. ADEMPAS [Suspect]
     Active Substance: RIOCIGUAT
     Indication: PULMONARY HYPERTENSION
     Dosage: 0.5 MG, TID
     Route: 048
     Dates: start: 20160608

REACTIONS (15)
  - Pain of skin [None]
  - Pain [None]
  - Dyspnoea [None]
  - Erythema [None]
  - Throat tightness [None]
  - Hospitalisation [None]
  - Throat tightness [None]
  - Oropharyngeal discomfort [None]
  - Adverse drug reaction [None]
  - Throat tightness [None]
  - Myalgia [None]
  - Rash generalised [None]
  - Pain [None]
  - Skin burning sensation [None]
  - Rash macular [None]

NARRATIVE: CASE EVENT DATE: 201606
